FAERS Safety Report 18902688 (Version 1)
Quarter: 2021Q1

REPORT INFORMATION
  Report Type: Report from Study
  Country: US (occurrence: US)
  Receive Date: 20210217
  Receipt Date: 20210217
  Transmission Date: 20210420
  Serious: Yes (Death, Other)
  Sender: FDA-Public Use
  Company Number: NVSC2020US291625

PATIENT
  Age: 31 Year
  Sex: Male

DRUGS (3)
  1. CYCLOPHOSPHAMIDE. [Concomitant]
     Active Substance: CYCLOPHOSPHAMIDE
     Indication: CHEMOTHERAPY
     Dosage: UNK
     Route: 065
  2. KYMRIAH [Suspect]
     Active Substance: TISAGENLECLEUCEL
     Indication: DIFFUSE LARGE B-CELL LYMPHOMA
     Dosage: UNK UNK, ONCE/SINGLE (1.4E8 CAR?POSITIVE VIABLE T CELLS)
     Route: 041
     Dates: start: 20190515
  3. FLUDARABINE [Concomitant]
     Active Substance: FLUDARABINE PHOSPHATE
     Indication: CHEMOTHERAPY
     Dosage: UNK
     Route: 065

REACTIONS (13)
  - Diffuse large B-cell lymphoma [Unknown]
  - Platelet count decreased [Unknown]
  - Enterococcal infection [Unknown]
  - Fungal infection [Fatal]
  - Alpha haemolytic streptococcal infection [Unknown]
  - Trichophytosis [Unknown]
  - Haematocrit decreased [Unknown]
  - Streptococcal infection [Unknown]
  - Malignant neoplasm progression [Unknown]
  - White blood cell count decreased [Unknown]
  - Neutrophil count decreased [Unknown]
  - Lymphocyte count decreased [Unknown]
  - Haemoglobin decreased [Unknown]
